FAERS Safety Report 19919897 (Version 2)
Quarter: 2021Q4

REPORT INFORMATION
  Report Type: Spontaneous
  Country: US (occurrence: None)
  Receive Date: 20211005
  Receipt Date: 20211109
  Transmission Date: 20220303
  Serious: Yes (Other)
  Sender: FDA-Public Use
  Company Number: 2021A750040

PATIENT
  Age: 53 Year
  Sex: Female
  Weight: 108.9 kg

DRUGS (1)
  1. FASENRA [Suspect]
     Active Substance: BENRALIZUMAB
     Indication: Asthma
     Route: 058

REACTIONS (5)
  - Asthma [Recovered/Resolved]
  - Product dose omission issue [Unknown]
  - Chest discomfort [Unknown]
  - Inappropriate schedule of product administration [Unknown]
  - Product distribution issue [Unknown]

NARRATIVE: CASE EVENT DATE: 20210101
